FAERS Safety Report 10304700 (Version 1)
Quarter: 2014Q3

REPORT INFORMATION
  Report Type: Spontaneous
  Country: US (occurrence: None)
  Receive Date: 20140710
  Receipt Date: 20140710
  Transmission Date: 20150326
  Serious: Yes (Disabling)
  Sender: FDA-Public Use
  Company Number: None

PATIENT
  Age: 69 Year
  Sex: Male
  Weight: 86.18 kg

DRUGS (1)
  1. FUROSEMIDE. [Suspect]
     Active Substance: FUROSEMIDE
     Indication: FLUID OVERLOAD
     Route: 048
     Dates: start: 20131106, end: 20131107

REACTIONS (5)
  - Product substitution issue [None]
  - Product quality issue [None]
  - Somnolence [None]
  - Feeling abnormal [None]
  - No therapeutic response [None]

NARRATIVE: CASE EVENT DATE: 20131105
